FAERS Safety Report 12985675 (Version 3)
Quarter: 2018Q3

REPORT INFORMATION
  Report Type: Spontaneous
  Country: JP (occurrence: JP)
  Receive Date: 20161130
  Receipt Date: 20180705
  Transmission Date: 20181010
  Serious: Yes (Other)
  Sender: FDA-Public Use
  Company Number: JP-ACCORD-045911

PATIENT
  Age: 50 Year
  Sex: Male
  Weight: 68.3 kg

DRUGS (5)
  1. EVEROLIMUS. [Interacting]
     Active Substance: EVEROLIMUS
     Indication: IMMUNOSUPPRESSANT DRUG THERAPY
     Dosage: LATER ALSO RECEIVED 1.75 MG/DAY
  2. TACROLIMUS. [Interacting]
     Active Substance: TACROLIMUS
     Indication: IMMUNOSUPPRESSANT DRUG THERAPY
     Dosage: DOSE REDUCED TO 1.4 MG/DAY
  3. MYCOPHENOLIC ACID. [Suspect]
     Active Substance: MYCOPHENOLIC ACID
     Indication: IMMUNOSUPPRESSANT DRUG THERAPY
  4. PREDNISOLONE. [Concomitant]
     Active Substance: PREDNISOLONE
     Indication: IMMUNOSUPPRESSANT DRUG THERAPY
  5. FLUCONAZOLE. [Interacting]
     Active Substance: FLUCONAZOLE
     Indication: INFECTIVE SPONDYLITIS
     Dosage: AFTER 54 DAYS, RECEIVED VIA ORAL ROUTE?DOSE
     Route: 042

REACTIONS (5)
  - Drug clearance decreased [Unknown]
  - Drug level increased [Unknown]
  - Drug interaction [Unknown]
  - Renal impairment [Recovered/Resolved]
  - Disease progression [Unknown]
